FAERS Safety Report 4752635-4 (Version None)
Quarter: 2005Q3

REPORT INFORMATION
  Report Type: 
  Country: None (occurrence: None)
  Receive Date: 20050824
  Receipt Date: 20050815
  Transmission Date: 20060218
  Serious: Yes (Hospitalization, Other)
  Sender: FDA-Public Use
  Company Number: 2005115234

PATIENT
  Age: 74 Year
  Sex: Male
  Weight: 104.3273 kg

DRUGS (2)
  1. LIPITOR [Suspect]
     Indication: BLOOD CHOLESTEROL INCREASED
     Dosage: 20 MG (20 MG, 1 IN 1 D)
  2. TOPROL-XL [Concomitant]

REACTIONS (8)
  - ATRIOVENTRICULAR BLOCK [None]
  - CORONARY ARTERY SURGERY [None]
  - KNEE ARTHROPLASTY [None]
  - MUSCLE SPASMS [None]
  - MYALGIA [None]
  - PAIN [None]
  - PROSTATE CANCER [None]
  - VASCULAR PSEUDOANEURYSM [None]
